FAERS Safety Report 9461737 (Version 1)
Quarter: 2013Q3

REPORT INFORMATION
  Report Type: Report from Study
  Country: JP (occurrence: JP)
  Receive Date: 20130816
  Receipt Date: 20130816
  Transmission Date: 20140515
  Serious: Yes (Hospitalization, Other)
  Sender: FDA-Public Use
  Company Number: JP-ASTELLAS-2013JP008527

PATIENT
  Age: 56 Year
  Sex: Male
  Weight: 72 kg

DRUGS (3)
  1. MIRABEGRON [Suspect]
     Indication: HYPERTONIC BLADDER
     Dosage: 50 MG, UID/QD
     Route: 048
     Dates: start: 20130108
  2. VESICARE [Concomitant]
     Indication: HYPERTONIC BLADDER
     Dosage: 5 MG, UNKNOWN/D
     Route: 048
     Dates: start: 20120418
  3. SPIROPENT [Concomitant]
     Indication: PROPHYLAXIS
     Dosage: UNK
     Route: 048
     Dates: start: 20120418

REACTIONS (1)
  - Cerebral infarction [Recovered/Resolved with Sequelae]
